FAERS Safety Report 24056967 (Version 4)
Quarter: 2025Q1

REPORT INFORMATION
  Report Type: Spontaneous
  Country: US (occurrence: US)
  Receive Date: 20240706
  Receipt Date: 20250325
  Transmission Date: 20250409
  Serious: Yes (Hospitalization, Other)
  Sender: AMGEN
  Company Number: US-AMGEN-USASP2024128478

PATIENT
  Age: 56 Year
  Sex: Female

DRUGS (55)
  1. TEPEZZA [Suspect]
     Active Substance: TEPROTUMUMAB-TRBW
     Indication: Endocrine ophthalmopathy
     Dosage: 1000 MILLIGRAM, Q3WK (FIRST INFUSION)
     Route: 042
     Dates: start: 20220520
  2. TEPEZZA [Suspect]
     Active Substance: TEPROTUMUMAB-TRBW
     Dosage: 1500 MILLIGRAM, Q3WK (SECOND INFUSION)
     Route: 042
     Dates: start: 20220610
  3. TEPEZZA [Suspect]
     Active Substance: TEPROTUMUMAB-TRBW
     Dosage: 1500 MILLIGRAM, Q3WK
     Route: 042
     Dates: start: 20220630, end: 2022
  4. SELENIUM [Concomitant]
     Active Substance: SELENIUM
     Route: 048
  5. SELENIUM [Concomitant]
     Active Substance: SELENIUM
     Dosage: 200 MICROGRAM, QD
     Route: 048
  6. TEMOVATE [Concomitant]
     Active Substance: CLOBETASOL PROPIONATE
     Dosage: UNK, BID
     Route: 061
  7. ZOCOR [Concomitant]
     Active Substance: SIMVASTATIN
     Dosage: 40 MILLIGRAM, QD
     Route: 048
  8. ROBAXIN [Concomitant]
     Active Substance: METHOCARBAMOL
     Route: 048
  9. TAPAZOLE [Concomitant]
     Active Substance: METHIMAZOLE
     Dosage: 5 MILLIGRAM, QD, (SKIP SUNDAY AND WEDNESDAY)
     Route: 048
  10. FLEXERIL [Concomitant]
     Active Substance: CYCLOBENZAPRINE HYDROCHLORIDE
     Route: 048
  11. XANAX [Concomitant]
     Active Substance: ALPRAZOLAM
     Route: 048
  12. TOPROL XL [Concomitant]
     Active Substance: METOPROLOL SUCCINATE
     Dosage: 25 MILLIGRAM, QD
     Route: 048
  13. COZAAR [Concomitant]
     Active Substance: LOSARTAN POTASSIUM
     Dosage: 50 MILLIGRAM, QD
     Route: 048
  14. VISTARIL [Concomitant]
     Active Substance: HYDROXYZINE PAMOATE
     Indication: Anxiety
     Dosage: 50 MILLIGRAM, Q6H
     Route: 048
  15. LUGOL [Concomitant]
     Active Substance: IODINE\POTASSIUM IODIDE
  16. SYNTHROID [Concomitant]
     Active Substance: LEVOTHYROXINE SODIUM
     Route: 048
  17. TUMS [Concomitant]
     Active Substance: CALCIUM CARBONATE
     Route: 048
  18. ROXICODONE [Concomitant]
     Active Substance: OXYCODONE HYDROCHLORIDE
     Route: 048
  19. TYLENOL [Concomitant]
     Active Substance: ACETAMINOPHEN
     Route: 048
  20. SUBLIMAZE [Concomitant]
     Active Substance: FENTANYL CITRATE
     Route: 042
  21. PROSTIGMIN [Concomitant]
     Active Substance: NEOSTIGMINE BROMIDE
     Route: 042
  22. ANCEF [Concomitant]
     Active Substance: CEFAZOLIN SODIUM
     Route: 042
  23. Neo synephrine [Concomitant]
     Route: 042
  24. SEVOFLURANE [Concomitant]
     Active Substance: SEVOFLURANE
     Route: 065
  25. XYLOCAINE [Concomitant]
     Active Substance: LIDOCAINE HYDROCHLORIDE
     Route: 042
  26. DIPRIVAN [Concomitant]
     Active Substance: PROPOFOL
     Route: 042
  27. ROBINUL [Concomitant]
     Active Substance: GLYCOPYRROLATE
     Route: 042
  28. KETALAR [Concomitant]
     Active Substance: KETAMINE HYDROCHLORIDE
     Route: 042
  29. DECADRON [Concomitant]
     Active Substance: DEXAMETHASONE
     Route: 042
  30. DILAUDID [Concomitant]
     Active Substance: HYDROMORPHONE HYDROCHLORIDE
     Route: 042
  31. ZOFRAN [Concomitant]
     Active Substance: ONDANSETRON HYDROCHLORIDE
     Route: 042
  32. MARCAINE WITH EPINEPHRINE [Concomitant]
     Active Substance: BUPIVACAINE HYDROCHLORIDE\EPINEPHRINE BITARTRATE
     Route: 065
  33. VITAMIN D3 [Concomitant]
     Active Substance: CHOLECALCIFEROL
     Route: 065
  34. BENADRYL [Concomitant]
     Active Substance: DIPHENHYDRAMINE HYDROCHLORIDE
     Route: 042
  35. ROMAZICON [Concomitant]
     Active Substance: FLUMAZENIL
     Route: 042
  36. APRESOLINE HYDROCHLORIDE [Concomitant]
     Active Substance: HYDRALAZINE HYDROCHLORIDE
     Route: 042
  37. TRANDATE [Concomitant]
     Active Substance: LABETALOL HYDROCHLORIDE
     Route: 042
  38. NORMODYNE [Concomitant]
     Active Substance: LABETALOL HYDROCHLORIDE
     Route: 042
  39. NARCAN [Concomitant]
     Active Substance: NALOXONE HYDROCHLORIDE
     Route: 042
  40. PHENERGAN [Concomitant]
     Active Substance: PROMETHAZINE HYDROCHLORIDE
     Route: 042
  41. VERSED [Concomitant]
     Active Substance: MIDAZOLAM HYDROCHLORIDE
     Route: 042
  42. NEURONTIN [Concomitant]
     Active Substance: GABAPENTIN
     Dosage: 100 MILLIGRAM, TID
     Route: 048
  43. PROZAC [Concomitant]
     Active Substance: FLUOXETINE HYDROCHLORIDE
     Route: 048
  44. PROZAC [Concomitant]
     Active Substance: FLUOXETINE HYDROCHLORIDE
     Dosage: 40 MILLIGRAM, QD
     Route: 048
  45. MACROBID [Concomitant]
     Active Substance: NITROFURANTOIN\NITROFURANTOIN MONOHYDRATE
     Route: 048
  46. PROTONIX [Concomitant]
     Active Substance: PANTOPRAZOLE SODIUM
     Route: 048
  47. DESYREL [Concomitant]
     Active Substance: TRAZODONE HYDROCHLORIDE
     Route: 048
  48. NORVASC [Concomitant]
     Active Substance: AMLODIPINE BESYLATE
     Route: 048
  49. ESTRACE [Concomitant]
     Active Substance: ESTRADIOL
     Route: 067
  50. NIASPAN [Concomitant]
     Active Substance: NIACIN
     Route: 048
  51. AUGMENTIN [Concomitant]
     Active Substance: AMOXICILLIN\CLAVULANATE POTASSIUM
     Route: 048
  52. MUCINEX D [Concomitant]
     Active Substance: GUAIFENESIN\PSEUDOEPHEDRINE HYDROCHLORIDE
     Route: 065
  53. BENZOYL PEROXIDE\CLINDAMYCIN PHOSPHATE [Concomitant]
     Active Substance: BENZOYL PEROXIDE\CLINDAMYCIN PHOSPHATE
     Route: 065
  54. VITAMIN B COMPLEX [Concomitant]
     Active Substance: CYANOCOBALAMIN\DEXPANTHENOL\NIACINAMIDE\PYRIDOXINE HYDROCHLORIDE\RIBOFLAVIN 5^-PHOSPHATE SODIUM\THIA
     Dosage: UNK UNK, QD
     Route: 048
  55. MAGNESIUM CITRATE [Concomitant]
     Active Substance: MAGNESIUM CITRATE
     Route: 048

REACTIONS (44)
  - Deafness neurosensory [Not Recovered/Not Resolved]
  - Exophthalmos [Unknown]
  - Renal impairment [Unknown]
  - Pancreatitis [Unknown]
  - Pain [Not Recovered/Not Resolved]
  - Emotional distress [Not Recovered/Not Resolved]
  - Anxiety [Not Recovered/Not Resolved]
  - Injury [Not Recovered/Not Resolved]
  - Alopecia [Unknown]
  - Tinnitus [Not Recovered/Not Resolved]
  - Product use complaint [Unknown]
  - Benign neoplasm of thyroid gland [Unknown]
  - Essential hypertension [Unknown]
  - Obesity [Unknown]
  - Diplopia [Unknown]
  - Dyspnoea [Unknown]
  - Bowel movement irregularity [Unknown]
  - Nervousness [Unknown]
  - Blood pressure fluctuation [Unknown]
  - Sleep disorder [Unknown]
  - Temperature intolerance [Unknown]
  - Acne [Unknown]
  - Arthralgia [Unknown]
  - Constipation [Unknown]
  - Neck pain [Unknown]
  - Skin lesion [Unknown]
  - Hypersensitivity [Unknown]
  - Contusion [Unknown]
  - Strabismus [Unknown]
  - Osteoarthritis [Unknown]
  - Blood triglycerides abnormal [Unknown]
  - Myalgia [Unknown]
  - Blood pressure abnormal [Unknown]
  - High density lipoprotein decreased [Unknown]
  - Low density lipoprotein increased [Unknown]
  - Depression [Unknown]
  - Sinus congestion [Unknown]
  - Cough [Unknown]
  - Glomerular filtration rate abnormal [Unknown]
  - Blood chloride abnormal [Unknown]
  - Rash [Unknown]
  - Dry skin [Unknown]
  - Blood glucose increased [Unknown]
  - Headache [Not Recovered/Not Resolved]

NARRATIVE: CASE EVENT DATE: 20220101
